FAERS Safety Report 8071290-1 (Version None)
Quarter: 2012Q1

REPORT INFORMATION
  Report Type: 
  Country: None (occurrence: None)
  Receive Date: 20120125
  Receipt Date: 20120119
  Transmission Date: 20120608
  Serious: Yes (Death, Hospitalization)
  Sender: FDA-Public Use
  Company Number: IT-BRISTOL-MYERS SQUIBB COMPANY-16358244

PATIENT
  Age: 55 Year
  Sex: Female

DRUGS (3)
  1. PREDNISONE [Concomitant]
     Dates: start: 20030501
  2. METHOTREXATE [Suspect]
     Indication: RHEUMATOID ARTHRITIS
     Dates: start: 20041101, end: 20120101
  3. ABATACEPT [Suspect]
     Indication: RHEUMATOID ARTHRITIS
     Dosage: INTERRUPTED ON 29DEC2011
     Route: 058
     Dates: start: 20090219

REACTIONS (4)
  - PANCYTOPENIA [None]
  - PYREXIA [None]
  - OROPHARYNGEAL PAIN [None]
  - RENAL FAILURE ACUTE [None]
